FAERS Safety Report 7715984-3 (Version None)
Quarter: 2011Q3

REPORT INFORMATION
  Report Type: 
  Country: None (occurrence: None)
  Receive Date: 20110822
  Receipt Date: 20110805
  Transmission Date: 20111222
  Serious: Yes (Death, Other)
  Sender: FDA-Public Use
  Company Number: 2011MA011503

PATIENT
  Age: 22 Year
  Sex: Female

DRUGS (2)
  1. MIRTAZAPINE [Suspect]
  2. 3, 4-METHYLENEDIOXYMETHAMPHETAMINE 0.2 [Suspect]

REACTIONS (3)
  - TOXICITY TO VARIOUS AGENTS [None]
  - CARBON MONOXIDE POISONING [None]
  - DRUG INTERACTION [None]
